FAERS Safety Report 6569941-3 (Version None)
Quarter: 2010Q1

REPORT INFORMATION
  Report Type: 
  Country: None (occurrence: None)
  Receive Date: 20100202
  Receipt Date: 20100202
  Transmission Date: 20100710
  Serious: Yes (Life-Threatening, Hospitalization)
  Sender: FDA-Public Use
  Company Number: None

PATIENT
  Age: 43 Year
  Sex: Female
  Weight: 76.6579 kg

DRUGS (1)
  1. BIAXIN [Suspect]
     Indication: BRONCHITIS
     Dosage: 1 TABLET TWICE DAILY PO
     Route: 048
     Dates: start: 20091230, end: 20100105

REACTIONS (7)
  - ANGINA PECTORIS [None]
  - DEHYDRATION [None]
  - DIZZINESS [None]
  - DYSPNOEA [None]
  - ELECTROCARDIOGRAM ABNORMAL [None]
  - HEART RATE INCREASED [None]
  - PALPITATIONS [None]
